FAERS Safety Report 8603142-X (Version None)
Quarter: 2012Q3

REPORT INFORMATION
  Report Type: 
  Country: None (occurrence: None)
  Receive Date: 20120817
  Receipt Date: 20120814
  Transmission Date: 20120928
  Serious: Yes (Other)
  Sender: FDA-Public Use
  Company Number: PHHY2012TN057329

PATIENT
  Age: 32 Year
  Sex: Female

DRUGS (1)
  1. CIPROFLOXACIN [Suspect]
     Indication: PYELONEPHRITIS ACUTE
     Dosage: 1000 MG, PER DAY

REACTIONS (11)
  - PRURIGO [None]
  - MYOGLOBINURIA [None]
  - MOTOR DYSFUNCTION [None]
  - POLYURIA [None]
  - CHROMATURIA [None]
  - RASH PAPULAR [None]
  - MYALGIA [None]
  - MUSCULAR WEAKNESS [None]
  - TUBULOINTERSTITIAL NEPHRITIS [None]
  - RHABDOMYOLYSIS [None]
  - RENAL FAILURE ACUTE [None]
